FAERS Safety Report 21557323 (Version 8)
Quarter: 2023Q2

REPORT INFORMATION
  Report Type: Report from Study
  Country: US (occurrence: US)
  Receive Date: 20221105
  Receipt Date: 20230629
  Transmission Date: 20230721
  Serious: No
  Sender: FDA-Public Use
  Company Number: US-002147023-NVSC2022US249633

PATIENT
  Sex: Female

DRUGS (2)
  1. COSENTYX [Suspect]
     Active Substance: SECUKINUMAB
     Indication: Ankylosing spondylitis
     Dosage: UNK (FOR 5 YEARS)
     Route: 065
     Dates: end: 202104
  2. COSENTYX [Suspect]
     Active Substance: SECUKINUMAB
     Dosage: 300 MG, QW
     Route: 058

REACTIONS (4)
  - Gastroenteritis viral [Recovering/Resolving]
  - Influenza [Unknown]
  - Mobility decreased [Unknown]
  - Arthritis [Unknown]
